FAERS Safety Report 8559160-3 (Version None)
Quarter: 2012Q3

REPORT INFORMATION
  Report Type: 
  Country: None (occurrence: None)
  Receive Date: 20120802
  Receipt Date: 20120723
  Transmission Date: 20120928
  Serious: No
  Sender: FDA-Public Use
  Company Number: US-009507513-1207USA009765

PATIENT

DRUGS (8)
  1. ASPIRIN [Concomitant]
  2. ZETIA [Suspect]
     Route: 048
  3. LIPITOR [Suspect]
  4. NEXIUM [Suspect]
     Route: 048
  5. METOPROLOL SUCCINATE [Suspect]
     Route: 048
  6. CRESTOR [Suspect]
     Route: 048
  7. ZOCOR [Suspect]
     Dosage: UNK
     Route: 048
  8. VITAMINS (UNSPECIFIED) [Concomitant]

REACTIONS (6)
  - DRUG INEFFECTIVE [None]
  - MUSCULAR WEAKNESS [None]
  - PAIN IN EXTREMITY [None]
  - HEART RATE INCREASED [None]
  - HERNIA [None]
  - BLOOD PRESSURE INCREASED [None]
